FAERS Safety Report 6657273-4 (Version None)
Quarter: 2010Q1

REPORT INFORMATION
  Report Type: 
  Country: None (occurrence: None)
  Receive Date: 20100330
  Receipt Date: 20100323
  Transmission Date: 20100710
  Serious: Yes (Other)
  Sender: FDA-Public Use
  Company Number: US-NAPPMUNDI-GBR-2010-0006332

PATIENT
  Age: 21 Year
  Sex: Male
  Weight: 46 kg

DRUGS (7)
  1. OXYCODONE HCL [Suspect]
     Indication: PAIN MANAGEMENT
     Dosage: 40 MG, AM
     Route: 048
  2. OXYCODONE HCL [Suspect]
     Dosage: 60 MG, NOCTE
     Route: 048
  3. HYDROMORPHONE HCL (SIMILAR TO 19-892) [Suspect]
     Indication: PAIN MANAGEMENT
     Dosage: 3 MG, EVERY 10 MINUTES
     Route: 042
  4. GABAPENTIN [Suspect]
     Indication: PAIN MANAGEMENT
     Dosage: 900 MG, TID
  5. AMITRIPTYLINE [Suspect]
     Indication: PAIN MANAGEMENT
     Dosage: 50 MG, NOCTE
     Route: 065
  6. DIPHENHYDRAMINE HYDROCHLORIDE [Suspect]
     Dosage: 50 MG, UNK
     Route: 042
  7. GRANISETRON [Suspect]
     Dosage: 1 MG, UNK

REACTIONS (1)
  - WITHDRAWAL SYNDROME [None]
